FAERS Safety Report 4524990-1 (Version None)
Quarter: 2004Q4

REPORT INFORMATION
  Report Type: 
  Country: None (occurrence: None)
  Receive Date: 20041210
  Receipt Date: 20041201
  Transmission Date: 20050328
  Serious: Yes (Other)
  Sender: FDA-Public Use
  Company Number: 003682

PATIENT
  Age: 56 Year
  Sex: Female

DRUGS (4)
  1. MEDROXYPROGESTERONE ACETATE [Suspect]
     Dates: start: 19920101, end: 19990101
  2. PREMARIN [Suspect]
     Dates: start: 19920101, end: 19990101
  3. PREMPRO [Suspect]
     Dates: start: 19920101, end: 19990101
  4. PROVERA [Suspect]
     Dates: start: 19920101, end: 19990101

REACTIONS (3)
  - BREAST CANCER FEMALE [None]
  - OESTROGEN RECEPTOR ASSAY POSITIVE [None]
  - PROGESTERONE RECEPTOR ASSAY POSITIVE [None]
